FAERS Safety Report 16042716 (Version 1)
Quarter: 2019Q2

REPORT INFORMATION
  Report Type: Spontaneous
  Country: US (occurrence: US)
  Receive Date: 20190306
  Receipt Date: 20190306
  Transmission Date: 20190711
  Serious: Yes (Hospitalization)
  Sender: FDA-Public Use
  Company Number: None

PATIENT
  Age: 68 Year
  Sex: Female

DRUGS (4)
  1. MAGNESUIM 300MG CAPS [Concomitant]
     Dates: start: 20190305
  2. ADVIL 200MG TABLETS [Concomitant]
     Dates: start: 20190305
  3. HUMIRA [Suspect]
     Active Substance: ADALIMUMAB
     Indication: RHEUMATOID ARTHRITIS
     Dosage: ?          OTHER FREQUENCY:EVERY OTHER WEEK;?
     Route: 058
  4. WELLBUTRIN XL 300MG TABLETS [Concomitant]
     Dates: start: 20190305

REACTIONS (3)
  - Pain [None]
  - Depression [None]
  - Therapy cessation [None]

NARRATIVE: CASE EVENT DATE: 20190111
